FAERS Safety Report 18556267 (Version 2)
Quarter: 2020Q4

REPORT INFORMATION
  Report Type: Spontaneous
  Country: LB (occurrence: LB)
  Receive Date: 20201128
  Receipt Date: 20201208
  Transmission Date: 20210114
  Serious: Yes (Hospitalization, Other)
  Sender: FDA-Public Use
  Company Number: LB-MACLEODS PHARMACEUTICALS US LTD-MAC2020029243

PATIENT

DRUGS (4)
  1. OSELTAMIVIR 75MG [Suspect]
     Active Substance: OSELTAMIVIR
     Indication: H1N1 INFLUENZA
  2. OSELTAMIVIR 75MG [Suspect]
     Active Substance: OSELTAMIVIR
     Indication: INFLUENZA
     Dosage: 75 MILLIGRAM, BID
     Route: 048
  3. PARACETAMOL [Concomitant]
     Active Substance: ACETAMINOPHEN
     Indication: PRODUCT USED FOR UNKNOWN INDICATION
     Dosage: 1 GRAM, QID, AS NEEDED
     Route: 065
  4. SODIUM CHLORIDE. [Concomitant]
     Active Substance: SODIUM CHLORIDE
     Indication: PRODUCT USED FOR UNKNOWN INDICATION
     Dosage: UNK
     Route: 065

REACTIONS (2)
  - Agitation [Recovered/Resolved]
  - Abnormal behaviour [Recovered/Resolved]
